FAERS Safety Report 5776587-3 (Version None)
Quarter: 2008Q2

REPORT INFORMATION
  Report Type: 
  Country: None (occurrence: None)
  Receive Date: 20080618
  Receipt Date: 20080616
  Transmission Date: 20081010
  Serious: Yes (Hospitalization, Disabling)
  Sender: FDA-Public Use
  Company Number: DE-WYE-H03308408

PATIENT
  Sex: Male
  Weight: 72 kg

DRUGS (6)
  1. CYCLOSPORINE [Suspect]
     Indication: PROPHYLAXIS AGAINST TRANSPLANT REJECTION
     Dosage: 290 MG DAILY (140-0-150)
     Route: 048
     Dates: start: 20061216
  2. CIPROFLOXACIN HCL [Concomitant]
     Indication: ANTIBIOTIC THERAPY
     Dosage: 2 X 250 MG
     Route: 065
     Dates: start: 20080312, end: 20080326
  3. DECORTIN [Concomitant]
     Indication: PROPHYLAXIS AGAINST TRANSPLANT REJECTION
     Dosage: 2.5 (1-0-0)
     Route: 065
  4. BENZBROMARONE [Concomitant]
     Indication: HYPERURICAEMIA
     Dosage: 1 X 100 MG TWICE PER WEEK
     Route: 065
  5. BISOPROLOL FUMARATE [Concomitant]
     Indication: HYPERTONIA
     Dosage: 2.5 (1-0-1)
     Route: 065
  6. URSODIOL [Concomitant]
     Dosage: DOSE AND FREQUENCY NOT SPECIFIED
     Route: 065

REACTIONS (1)
  - HEPATIC NEOPLASM MALIGNANT RECURRENT [None]
